FAERS Safety Report 24748884 (Version 1)
Quarter: 2024Q4

REPORT INFORMATION
  Report Type: Spontaneous
  Country: CO (occurrence: CO)
  Receive Date: 20241218
  Receipt Date: 20241218
  Transmission Date: 20250114
  Serious: Yes (Other)
  Sender: AMGEN
  Company Number: CO-AMGEN-COLSP2024245944

PATIENT

DRUGS (1)
  1. ADALIMUMAB [Suspect]
     Active Substance: ADALIMUMAB
     Indication: Spondylitis
     Dosage: UNK
     Route: 065

REACTIONS (14)
  - Haematochezia [Unknown]
  - Mucous stools [Unknown]
  - Abdominal distension [Unknown]
  - Food intolerance [Unknown]
  - Gastrointestinal mucosal disorder [Unknown]
  - C-reactive protein increased [Unknown]
  - Erythema [Unknown]
  - Ulcer [Unknown]
  - Intestinal villi atrophy [Unknown]
  - Eosinophilia [Unknown]
  - Weight decreased [Unknown]
  - Diarrhoea [Unknown]
  - Abdominal pain [Unknown]
  - Inflammation [Unknown]
